FAERS Safety Report 23960593 (Version 1)
Quarter: 2024Q2

REPORT INFORMATION
  Report Type: Spontaneous
  Country: FR (occurrence: FR)
  Receive Date: 20240611
  Receipt Date: 20240611
  Transmission Date: 20240716
  Serious: Yes (Other)
  Sender: FDA-Public Use
  Company Number: FR-SUN PHARMACEUTICAL INDUSTRIES LTD-2024RR-450818

PATIENT
  Age: 71 Year
  Sex: Male
  Weight: 85 kg

DRUGS (3)
  1. OXALIPLATIN [Suspect]
     Active Substance: OXALIPLATIN
     Indication: Colorectal cancer metastatic
     Dosage: 170 MILLIGRAM, 1DOSE/1CYCLIC, C1J1
     Route: 040
     Dates: start: 20240124
  2. PREDNISOLONE [Suspect]
     Active Substance: PREDNISOLONE
     Indication: Prophylaxis
     Dosage: 60 MILLIGRAM, DAILY
     Route: 040
     Dates: start: 20240124, end: 20240124
  3. FLUOROURACIL [Suspect]
     Active Substance: FLUOROURACIL
     Indication: Colorectal cancer metastatic
     Dosage: 5600 MILLIGRAM, 1DOSE/1CYCLIC, C1J1
     Route: 040
     Dates: start: 20240124

REACTIONS (3)
  - Agitation [Not Recovered/Not Resolved]
  - Insomnia [Not Recovered/Not Resolved]
  - Personality change [Not Recovered/Not Resolved]
